FAERS Safety Report 8629601 (Version 2)
Quarter: 2013Q4

REPORT INFORMATION
  Report Type: Spontaneous
  Country: US (occurrence: US)
  Receive Date: 20120622
  Receipt Date: 20131011
  Transmission Date: 20140711
  Serious: Yes (Hospitalization)
  Sender: FDA-Public Use
  Company Number: US-ASTRAZENECA-2012SE36316

PATIENT
  Age: 86 Year
  Sex: Female

DRUGS (2)
  1. NEXIUM [Suspect]
     Indication: PHARYNGEAL MASS
     Route: 048
  2. OMEPRAZOLE [Suspect]
     Route: 065

REACTIONS (2)
  - Ankle fracture [Unknown]
  - Osteoporosis [Unknown]
